FAERS Safety Report 19091987 (Version 2)
Quarter: 2021Q2

REPORT INFORMATION
  Report Type: Report from Study
  Country: NL (occurrence: NL)
  Receive Date: 20210405
  Receipt Date: 20210420
  Transmission Date: 20210717
  Serious: Yes (Hospitalization)
  Sender: FDA-Public Use
  Company Number: NL-ROCHE-2796883

PATIENT
  Age: 69 Year
  Sex: Female

DRUGS (4)
  1. PERTUZUMAB. [Suspect]
     Active Substance: PERTUZUMAB
     Indication: HER2 POSITIVE BREAST CANCER
     Dosage: MOST CURRENT TREATMENT: 11/FEB/2021
     Route: 042
     Dates: start: 20200513
  2. TRASTUZUMAB. [Suspect]
     Active Substance: TRASTUZUMAB
     Indication: HER2 POSITIVE BREAST CANCER
     Dosage: MOST CURRENT TREATMENT: 11/FEB/2021
     Route: 041
     Dates: start: 20200513
  3. CARBOPLATIN. [Suspect]
     Active Substance: CARBOPLATIN
     Indication: HER2 POSITIVE BREAST CANCER
     Dosage: MOST CURRENT TREATMENT: 02/SEP/2020
     Route: 042
     Dates: start: 20200513
  4. PACLITAXEL. [Suspect]
     Active Substance: PACLITAXEL
     Indication: HER2 POSITIVE BREAST CANCER
     Dosage: MOST CURRENT TREATMENT: 02/SEP/2020
     Route: 042
     Dates: start: 20200513

REACTIONS (1)
  - Pneumonitis [Recovered/Resolved]

NARRATIVE: CASE EVENT DATE: 20210319
